FAERS Safety Report 10022356 (Version 1)
Quarter: 2014Q1

REPORT INFORMATION
  Report Type: Spontaneous
  Country: US (occurrence: US)
  Receive Date: 20140319
  Receipt Date: 20140319
  Transmission Date: 20141002
  Serious: Yes (Hospitalization)
  Sender: FDA-Public Use
  Company Number: US-ACTAVIS-2014-04900

PATIENT
  Age: 73 Year
  Sex: Female
  Weight: 60 kg

DRUGS (4)
  1. LETROZOLE [Suspect]
     Indication: BREAST CANCER
     Dosage: 2.5 MG, DAILY
     Route: 048
     Dates: start: 20131015
  2. PLACEBO [Suspect]
     Indication: BREAST CANCER
     Dosage: UNK
     Dates: start: 20131015
  3. METHADONE [Concomitant]
     Indication: NEURALGIA
     Dosage: UNK
     Route: 065
     Dates: start: 20131017, end: 20131017
  4. MYCELEX [Concomitant]
     Indication: CANDIDA INFECTION
     Dosage: UNK
     Route: 065
     Dates: start: 20131015

REACTIONS (1)
  - Febrile neutropenia [Recovering/Resolving]
